FAERS Safety Report 23319077 (Version 1)
Quarter: 2023Q4

REPORT INFORMATION
  Report Type: Spontaneous
  Country: CN (occurrence: CN)
  Receive Date: 20231220
  Receipt Date: 20231220
  Transmission Date: 20240109
  Serious: Yes (Hospitalization)
  Sender: FDA-Public Use
  Company Number: CN-CHIESI-2023CHF06732

PATIENT
  Age: 73 Year
  Sex: Female
  Weight: 74.7 kg

DRUGS (1)
  1. CLEVIDIPINE [Suspect]
     Active Substance: CLEVIDIPINE
     Indication: Hypertension
     Dosage: 24.47 MILLILITER
     Route: 042
     Dates: start: 20231203, end: 20231204

REACTIONS (1)
  - Acute coronary syndrome [Unknown]

NARRATIVE: CASE EVENT DATE: 20231204
